FAERS Safety Report 14979690 (Version 8)
Quarter: 2024Q2

REPORT INFORMATION
  Report Type: Spontaneous
  Country: IT (occurrence: IT)
  Receive Date: 20180606
  Receipt Date: 20240415
  Transmission Date: 20240716
  Serious: Yes (Hospitalization, Other)
  Sender: FDA-Public Use
  Company Number: IT-SA-2018SA122122

PATIENT
  Age: 52 Year
  Sex: Male

DRUGS (4)
  1. DOCETAXEL [Suspect]
     Active Substance: DOCETAXEL\DOCETAXEL ANHYDROUS
     Indication: Penile squamous cell carcinoma
     Dosage: UNK
     Dates: end: 201607
  2. DOCETAXEL [Suspect]
     Active Substance: DOCETAXEL\DOCETAXEL ANHYDROUS
     Dosage: 2 ONCE-WEEKLY CYCLES
     Dates: start: 201611
  3. CISPLATIN [Concomitant]
     Active Substance: CISPLATIN
     Indication: Penile squamous cell carcinoma
     Dosage: UNK
  4. CAPECITABINE [Concomitant]
     Active Substance: CAPECITABINE
     Indication: Penile squamous cell carcinoma
     Dosage: UNK
     Dates: start: 201607

REACTIONS (2)
  - Atypical haemolytic uraemic syndrome [Recovering/Resolving]
  - Off label use [Unknown]

NARRATIVE: CASE EVENT DATE: 20160101
